FAERS Safety Report 26189415 (Version 1)
Quarter: 2025Q4

REPORT INFORMATION
  Report Type: Spontaneous
  Country: US (occurrence: US)
  Receive Date: 20251223
  Receipt Date: 20251223
  Transmission Date: 20260118
  Serious: No
  Sender: SANOFI AVENTIS
  Company Number: US-SA-2025SA380030

PATIENT
  Age: 31 Year
  Sex: Male

DRUGS (10)
  1. DUPIXENT [Suspect]
     Active Substance: DUPILUMAB
     Indication: Asthma
     Dosage: 300 MG, QOW
     Route: 058
     Dates: start: 20251113
  2. HYDRO SKIN [Concomitant]
     Active Substance: HYDROCORTISONE
  3. DIPHENHYDRAMINE [Concomitant]
     Active Substance: DIPHENHYDRAMINE
  4. COLACE [Concomitant]
     Active Substance: DOCUSATE SODIUM
  5. BUSPIRONE [Concomitant]
     Active Substance: BUSPIRONE HYDROCHLORIDE
  6. BOTOX [Concomitant]
     Active Substance: ONABOTULINUMTOXINA
  7. BENZONATATE [Concomitant]
     Active Substance: BENZONATATE
  8. ATORVASTATIN [Concomitant]
     Active Substance: ATORVASTATIN
  9. ATIVAN [Concomitant]
     Active Substance: LORAZEPAM
  10. ADVAIR HFA [Concomitant]
     Active Substance: FLUTICASONE PROPIONATE\SALMETEROL XINAFOATE

REACTIONS (1)
  - Asthma [Unknown]

NARRATIVE: CASE EVENT DATE: 20250101
